FAERS Safety Report 4407953-6 (Version None)
Quarter: 2004Q3

REPORT INFORMATION
  Report Type: 
  Country: None (occurrence: None)
  Receive Date: 20040716
  Receipt Date: 20420708
  Transmission Date: 20050211
  Serious: Yes (Hospitalization)
  Sender: FDA-Public Use
  Company Number: 2004210919FR

PATIENT
  Age: 41 Year
  Sex: Male
  Weight: 92 kg

DRUGS (9)
  1. GENOTROPIN [Suspect]
     Indication: HYPOPITUITARISM
     Dosage: 0.3 MG, QD; SEE IMAGE
     Dates: start: 20040119, end: 20040130
  2. GENOTROPIN [Suspect]
     Indication: HYPOPITUITARISM
     Dosage: 0.3 MG, QD; SEE IMAGE
     Dates: start: 20040218, end: 20040420
  3. GENOTROPIN [Suspect]
     Indication: HYPOPITUITARISM
     Dosage: 0.3 MG, QD; SEE IMAGE
     Dates: start: 20040421
  4. LEVOTHYROXINE (LEVOTHYROXINE SODIUM) [Concomitant]
  5. ANDROTARDYL (TESTESTERONE ENANTATE) [Concomitant]
  6. VASTEN (PRAVASTATIN SODUIM) [Concomitant]
  7. TENORMIN [Concomitant]
  8. HYDROCORTISON [Concomitant]
  9. KARDGEGIC [Concomitant]

REACTIONS (4)
  - ABDOMINAL PAIN UPPER [None]
  - ANAL HAEMORRHAGE [None]
  - MYDRIASIS [None]
  - OVERDOSE [None]
